FAERS Safety Report 22023200 (Version 1)
Quarter: 2023Q1

REPORT INFORMATION
  Report Type: Spontaneous
  Country: IT (occurrence: IT)
  Receive Date: 20230223
  Receipt Date: 20230223
  Transmission Date: 20230418
  Serious: Yes (Other)
  Sender: FDA-Public Use
  Company Number: IT-DOCGEN-2300835

PATIENT
  Age: 38 Year
  Sex: Male

DRUGS (2)
  1. AMOXICILLIN [Suspect]
     Active Substance: AMOXICILLIN
     Indication: Upper respiratory tract infection
     Dosage: 2 G/D
     Route: 065
  2. CEFOXITIN SODIUM [Suspect]
     Active Substance: CEFOXITIN SODIUM
     Indication: Upper respiratory tract infection
     Dosage: 1 G/D
     Route: 030

REACTIONS (2)
  - Biliary tract disorder [Recovered/Resolved]
  - Cholestasis [Recovered/Resolved]
